FAERS Safety Report 13535849 (Version 6)
Quarter: 2018Q2

REPORT INFORMATION
  Report Type: Other
  Country: CA (occurrence: CA)
  Receive Date: 20170511
  Receipt Date: 20180531
  Transmission Date: 20180711
  Serious: Yes (Hospitalization)
  Sender: FDA-Public Use
  Company Number: CA-APOTEX-2017AP011461

PATIENT
  Age: 52 Year
  Sex: Male

DRUGS (31)
  1. NASONEX [Suspect]
     Active Substance: MOMETASONE FUROATE
     Indication: PRODUCT USED FOR UNKNOWN INDICATION
     Dosage: 2 DF, QD
     Route: 045
  2. PREDNISOLONE. [Suspect]
     Active Substance: PREDNISOLONE
     Dosage: UNK, QD
     Route: 065
  3. MOXIFLOXACIN. [Suspect]
     Active Substance: MOXIFLOXACIN
     Indication: HYPERSENSITIVITY
  4. NASONEX [Suspect]
     Active Substance: MOMETASONE FUROATE
     Dosage: UNK UNK, QD
     Route: 006
  5. PREDNISOLONE. [Suspect]
     Active Substance: PREDNISOLONE
     Dosage: 4 DF, QD
     Route: 065
  6. BESIFLOXACIN HYDROCHLORIDE [Suspect]
     Active Substance: BESIFLOXACIN HYDROCHLORIDE
     Dosage: UNK, TID
     Route: 047
  7. BESIFLOXACIN HYDROCHLORIDE [Suspect]
     Active Substance: BESIFLOXACIN HYDROCHLORIDE
     Dosage: 3 GTT, QD
     Route: 047
  8. CIALIS [Suspect]
     Active Substance: TADALAFIL
     Dosage: UNK
     Route: 047
  9. PREDNISOLONE. [Suspect]
     Active Substance: PREDNISOLONE
     Dosage: UNK, TID
     Route: 065
  10. PREDNISOLONE. [Suspect]
     Active Substance: PREDNISOLONE
     Dosage: 2 DF, QD
     Route: 065
  11. PREDNISOLONE. [Suspect]
     Active Substance: PREDNISOLONE
     Dosage: 3 DF, QD
     Route: 065
  12. VIGAMOX [Suspect]
     Active Substance: MOXIFLOXACIN HYDROCHLORIDE
     Dosage: UNK, TID
     Route: 047
  13. BESIVANCE [Suspect]
     Active Substance: BESIFLOXACIN
     Indication: PRODUCT USED FOR UNKNOWN INDICATION
     Dosage: UNK, TID
     Route: 065
  14. CIALIS [Suspect]
     Active Substance: TADALAFIL
     Indication: PRODUCT USED FOR UNKNOWN INDICATION
     Dosage: 2 DF, QD
     Route: 065
  15. CIALIS [Suspect]
     Active Substance: TADALAFIL
     Dosage: UNK, BID
     Route: 065
  16. PREDNISOLONE. [Suspect]
     Active Substance: PREDNISOLONE
     Indication: PRODUCT USED FOR UNKNOWN INDICATION
     Dosage: UNK, BID
     Route: 065
  17. PREDNISOLONE. [Suspect]
     Active Substance: PREDNISOLONE
     Dosage: UNK, QID
     Route: 065
  18. BESIFLOXACIN HYDROCHLORIDE [Suspect]
     Active Substance: BESIFLOXACIN HYDROCHLORIDE
     Indication: PRODUCT USED FOR UNKNOWN INDICATION
     Dosage: UNK UNK, TID
     Route: 047
  19. PREDNISONE. [Suspect]
     Active Substance: PREDNISONE
     Indication: PRODUCT USED FOR UNKNOWN INDICATION
     Dosage: 50 MG, TID
     Route: 047
  20. MOXIFLOXACIN. [Suspect]
     Active Substance: MOXIFLOXACIN
     Indication: DRUG HYPERSENSITIVITY
     Dosage: 3 GTT, QD
     Route: 047
  21. BETOPTIC S [Suspect]
     Active Substance: BETAXOLOL HYDROCHLORIDE
     Indication: PRODUCT USED FOR UNKNOWN INDICATION
     Dosage: UNK, QD
     Route: 065
  22. PREDNISOLONE TEVA [Suspect]
     Active Substance: PREDNISOLONE
     Indication: PRODUCT USED FOR UNKNOWN INDICATION
     Dosage: 50 MG, QD
     Route: 065
  23. BETAXOLOL HYDROCHLORIDE. [Suspect]
     Active Substance: BETAXOLOL HYDROCHLORIDE
     Indication: PRODUCT USED FOR UNKNOWN INDICATION
     Dosage: 1 GTT, QD
     Route: 047
  24. PREDNISONE. [Suspect]
     Active Substance: PREDNISONE
     Dosage: 50 MG, QD
     Route: 065
  25. PREDNISONE. [Suspect]
     Active Substance: PREDNISONE
     Dosage: 50 MG, UNK
     Route: 047
  26. NASONEX [Suspect]
     Active Substance: MOMETASONE FUROATE
     Dosage: 1 UNK, UNK
     Route: 045
  27. OLOPATADINE. [Suspect]
     Active Substance: OLOPATADINE
     Indication: PRODUCT USED FOR UNKNOWN INDICATION
     Dosage: UNK, PRN
     Route: 047
  28. VIGAMOX [Suspect]
     Active Substance: MOXIFLOXACIN HYDROCHLORIDE
     Indication: PRODUCT USED FOR UNKNOWN INDICATION
     Dosage: UNK, TID
     Route: 065
  29. AMLODIPINE [Suspect]
     Active Substance: AMLODIPINE BESYLATE
     Indication: HYPERTENSION
     Dosage: 10 MG, QD
     Route: 048
  30. EPIPEN [Suspect]
     Active Substance: EPINEPHRINE
     Indication: DRUG HYPERSENSITIVITY
     Dosage: UNK, PRN
     Route: 030
  31. EPIPEN [Suspect]
     Active Substance: EPINEPHRINE
     Indication: HYPERSENSITIVITY

REACTIONS (1)
  - Hypersensitivity [Recovered/Resolved]
